FAERS Safety Report 7808175-9 (Version None)
Quarter: 2011Q4

REPORT INFORMATION
  Report Type: 
  Country: None (occurrence: None)
  Receive Date: 20111011
  Receipt Date: 20110927
  Transmission Date: 20120403
  Serious: Yes (Other)
  Sender: FDA-Public Use
  Company Number: BR-MERCK-1110BRA00007

PATIENT
  Age: 77 Year
  Sex: Female

DRUGS (4)
  1. RISEDRONATE SODIUM [Concomitant]
     Route: 065
  2. FOSAMAX [Suspect]
     Route: 065
     Dates: start: 20070101
  3. CHOLECALCIFEROL [Concomitant]
     Route: 065
  4. CALCIUM CARBONATE [Concomitant]
     Route: 065

REACTIONS (2)
  - TIBIA FRACTURE [None]
  - FEMUR FRACTURE [None]
